FAERS Safety Report 15209957 (Version 1)
Quarter: 2018Q3

REPORT INFORMATION
  Report Type: Spontaneous
  Country: US (occurrence: US)
  Receive Date: 20180727
  Receipt Date: 20180727
  Transmission Date: 20181010
  Serious: No
  Sender: FDA-Public Use
  Company Number: US-SUNOVION-2018SUN002799

PATIENT
  Age: 55 Year
  Sex: Male

DRUGS (3)
  1. LAMOTRIGINE. [Concomitant]
     Active Substance: LAMOTRIGINE
     Dosage: UNK
     Route: 048
  2. OLANZAPINE. [Concomitant]
     Active Substance: OLANZAPINE
     Dosage: UNK
  3. LATUDA [Suspect]
     Active Substance: LURASIDONE HYDROCHLORIDE
     Indication: BIPOLAR DISORDER
     Dosage: 60 MG, UNK
     Route: 048

REACTIONS (1)
  - Akathisia [Not Recovered/Not Resolved]
